FAERS Safety Report 8007041-6 (Version None)
Quarter: 2011Q4

REPORT INFORMATION
  Report Type: 
  Country: None (occurrence: None)
  Receive Date: 20111123
  Receipt Date: 20110915
  Transmission Date: 20120403
  Serious: No
  Sender: FDA-Public Use
  Company Number: 331760

PATIENT
  Age: 63 Year
  Sex: Female

DRUGS (1)
  1. VICTOZA [Suspect]
     Indication: TYPE 2 DIABETES MELLITUS
     Dosage: 1.8 MG,QD, SUBCUTANEOUS
     Route: 058

REACTIONS (3)
  - ABDOMINAL PAIN UPPER [None]
  - CONSTIPATION [None]
  - DIARRHOEA [None]
